FAERS Safety Report 22643573 (Version 1)
Quarter: 2023Q2

REPORT INFORMATION
  Report Type: Spontaneous
  Country: US (occurrence: US)
  Receive Date: 20230627
  Receipt Date: 20230627
  Transmission Date: 20230722
  Serious: No
  Sender: FDA-Public Use
  Company Number: US-SA-SAC20230623001296

PATIENT
  Sex: Female
  Weight: 87 kg

DRUGS (10)
  1. DUPIXENT [Suspect]
     Active Substance: DUPILUMAB
     Indication: Neoplasm skin
     Dosage: 600 MG, 1X
     Route: 058
  2. ALBUTEROL SULFATE [Concomitant]
     Active Substance: ALBUTEROL SULFATE
  3. PREGABALIN [Concomitant]
     Active Substance: PREGABALIN
  4. JAKAFI [Concomitant]
     Active Substance: RUXOLITINIB
  5. MIRTAZAPINE [Concomitant]
     Active Substance: MIRTAZAPINE
  6. APREPITANT [Concomitant]
     Active Substance: APREPITANT
  7. CLOBETASOL [Concomitant]
     Active Substance: CLOBETASOL
  8. HYDROXYZINE [Concomitant]
     Active Substance: HYDROXYZINE HYDROCHLORIDE
  9. GABAPENTIN [Concomitant]
     Active Substance: GABAPENTIN
  10. PAROXETINE [Concomitant]
     Active Substance: PAROXETINE

REACTIONS (2)
  - Lower limb fracture [Unknown]
  - Product use in unapproved indication [Unknown]
